FAERS Safety Report 7879141-2 (Version None)
Quarter: 2011Q4

REPORT INFORMATION
  Report Type: 
  Country: None (occurrence: None)
  Receive Date: 20111101
  Receipt Date: 20111021
  Transmission Date: 20120403
  Serious: Yes (Hospitalization)
  Sender: FDA-Public Use
  Company Number: US-BAYER-2011-019361

PATIENT
  Age: 31 Year
  Sex: Female
  Weight: 178 kg

DRUGS (2)
  1. YAZ [Suspect]
     Indication: MENSTRUAL DISORDER
     Dosage: UNK
     Dates: start: 20090202, end: 20090227
  2. YASMIN [Suspect]

REACTIONS (6)
  - PAIN [None]
  - DEEP VEIN THROMBOSIS [None]
  - DYSPNOEA [None]
  - PANIC ATTACK [None]
  - NERVOUSNESS [None]
  - PULMONARY EMBOLISM [None]
